FAERS Safety Report 8883759 (Version 1)
Quarter: 2012Q4

REPORT INFORMATION
  Report Type: 
  Country: US (occurrence: US)
  Receive Date: 20121102
  Receipt Date: 20121102
  Transmission Date: 20130627
  Serious: No
  Sender: FDA-Public Use
  Company Number: US-ASTRAZENECA-2012SE06402

PATIENT
  Age: 73 Year
  Sex: Female
  Weight: 81.6 kg

DRUGS (5)
  1. CRESTOR [Suspect]
     Indication: BLOOD CHOLESTEROL INCREASED
     Route: 048
  2. TIAZAC [Concomitant]
  3. PLAVIX [Concomitant]
     Indication: CARDIAC DISORDER
  4. LASIX [Concomitant]
     Indication: FLUID RETENTION
  5. LASIX [Concomitant]
     Indication: CARDIAC DISORDER

REACTIONS (1)
  - Vomiting [Recovered/Resolved]
